FAERS Safety Report 16113360 (Version 3)
Quarter: 2019Q2

REPORT INFORMATION
  Report Type: Spontaneous
  Country: US (occurrence: US)
  Receive Date: 20190325
  Receipt Date: 20190603
  Transmission Date: 20190711
  Serious: No
  Sender: FDA-Public Use
  Company Number: US-PFIZER INC-2019122838

PATIENT
  Age: 52 Year
  Sex: Female

DRUGS (1)
  1. EUCRISA [Suspect]
     Active Substance: CRISABOROLE
     Indication: DERMATITIS ATOPIC
     Dosage: UNK, 2X/DAY (APPLY TO AFFECTED AREAS TWICE A DAY IN A THIN FILM)

REACTIONS (2)
  - Application site pain [Recovered/Resolved]
  - Therapeutic response decreased [Unknown]
